FAERS Safety Report 9162538 (Version 1)
Quarter: 2013Q1

REPORT INFORMATION
  Report Type: Spontaneous
  Country: GR (occurrence: GR)
  Receive Date: 20130314
  Receipt Date: 20130314
  Transmission Date: 20140127
  Serious: Yes (Other)
  Sender: FDA-Public Use
  Company Number: GR-MYLANLABS-2013S1004911

PATIENT
  Age: 44 Year
  Sex: Male

DRUGS (6)
  1. FLUCONAZOLE [Suspect]
     Indication: MENINGITIS CRYPTOCOCCAL
     Dosage: 800 MG/DAY
     Route: 048
  2. FLUCONAZOLE [Suspect]
     Indication: MENINGITIS CRYPTOCOCCAL
     Dosage: 400 MG/DAY
     Route: 048
  3. KALETRA                            /01506501/ [Concomitant]
     Indication: HIV INFECTION
     Route: 065
  4. TENOFOVIR DISOPROXIL FUMARATE [Concomitant]
     Indication: HIV INFECTION
     Route: 065
  5. EMTRICITABINE [Concomitant]
     Indication: HIV INFECTION
     Route: 065
  6. AMPHOTERICIN B, LIPOSOME [Concomitant]

REACTIONS (1)
  - Adrenal insufficiency [Unknown]
